FAERS Safety Report 14531860 (Version 5)
Quarter: 2019Q1

REPORT INFORMATION
  Report Type: Report from Study
  Country: DE (occurrence: DE)
  Receive Date: 20180214
  Receipt Date: 20190215
  Transmission Date: 20190417
  Serious: Yes (Hospitalization, Other)
  Sender: FDA-Public Use
  Company Number: DE-MYLANLABS-2018M1009550

PATIENT
  Age: 68 Year
  Sex: Female
  Weight: 50 kg

DRUGS (29)
  1. BEVACIZUMAB. [Suspect]
     Active Substance: BEVACIZUMAB
     Indication: BREAST CANCER
     Dosage: 530 MILLIGRAM
     Route: 042
     Dates: start: 20110825, end: 20110825
  2. TAVEGIL                            /00137201/ [Suspect]
     Active Substance: CLEMASTINE FUMARATE
     Indication: BREAST CANCER METASTATIC
     Dosage: 2 MILLIGRAM
     Route: 042
     Dates: start: 20110825
  3. TORSEMIDE. [Concomitant]
     Active Substance: TORSEMIDE
     Dosage: UNK UNK, QD
     Route: 065
     Dates: start: 201001
  4. TROFEN                             /00109201/ [Concomitant]
     Dosage: UNK UNK, QD
     Route: 065
     Dates: start: 20110831
  5. AVASTIN [Suspect]
     Active Substance: BEVACIZUMAB
     Dosage: 520 MILLIGRAM
     Dates: start: 20111205, end: 20111205
  6. TORSEMIDE. [Concomitant]
     Active Substance: TORSEMIDE
     Indication: PRODUCT USED FOR UNKNOWN INDICATION
     Dosage: 3 DF, QD
     Route: 065
  7. TROFEN                             /00109201/ [Concomitant]
     Indication: PRODUCT USED FOR UNKNOWN INDICATION
     Dosage: 1 DOSAGE FORM, QD
  8. DENOSUMAB [Concomitant]
     Active Substance: DENOSUMAB
     Indication: BREAST CANCER
     Dosage: 60 MG, UNK
     Route: 065
     Dates: start: 20101020
  9. XELODA [Suspect]
     Active Substance: CAPECITABINE
     Dosage: 1300 MG/M2, UNK
     Route: 065
     Dates: start: 20111206
  10. HYDROCHLOROTHIAZIDE. [Concomitant]
     Active Substance: HYDROCHLOROTHIAZIDE
     Indication: PRODUCT USED FOR UNKNOWN INDICATION
     Dosage: UNK
     Route: 065
     Dates: start: 201001
  11. TORSEMIDE. [Concomitant]
     Active Substance: TORSEMIDE
     Dosage: UNK UNK, QD
     Route: 065
  12. BEVACIZUMAB. [Suspect]
     Active Substance: BEVACIZUMAB
     Dosage: 520 MILLIGRAM
     Route: 042
     Dates: start: 20111205, end: 20111205
  13. DEXAMETHASONE. [Suspect]
     Active Substance: DEXAMETHASONE
     Indication: BREAST CANCER METASTATIC
     Dosage: 8 MILLIGRAM
     Route: 042
     Dates: start: 20110825
  14. METOPROLOL. [Concomitant]
     Active Substance: METOPROLOL
     Dosage: UNK UNK, QD
     Route: 065
  15. AVASTIN [Suspect]
     Active Substance: BEVACIZUMAB
     Dosage: 530 MILLIGRAM
     Route: 042
     Dates: start: 20110825, end: 20111205
  16. ZOLEDRONIC ACID [Suspect]
     Active Substance: ZOLEDRONIC ACID
     Indication: BREAST CANCER METASTATIC
     Dosage: 3.3 MILLIGRAM
     Route: 042
     Dates: start: 20110825, end: 20110825
  17. AVASTIN [Suspect]
     Active Substance: BEVACIZUMAB
     Indication: BREAST CANCER
     Dosage: 530 MILLIGRAM
     Route: 042
     Dates: start: 20110825, end: 20110825
  18. CAPECITABINE. [Suspect]
     Active Substance: CAPECITABINE
     Indication: BREAST CANCER
     Dosage: 3000 MILLIGRAM
     Route: 065
     Dates: start: 20111019
  19. XELODA [Suspect]
     Active Substance: CAPECITABINE
     Dosage: 2300 MG, UNK
     Route: 065
     Dates: start: 20111109
  20. DENOSUMAB [Concomitant]
     Active Substance: DENOSUMAB
     Dosage: 120 MG, UNK
     Route: 065
     Dates: start: 20120116
  21. METOPROLOL. [Concomitant]
     Active Substance: METOPROLOL
     Indication: PRODUCT USED FOR UNKNOWN INDICATION
     Dosage: 2 DF, QD
     Route: 065
     Dates: start: 201001
  22. RANITIDINE. [Suspect]
     Active Substance: RANITIDINE
     Indication: BREAST CANCER METASTATIC
     Dosage: 50 MILLIGRAM
     Route: 042
     Dates: start: 20110825
  23. GRANISETRON [Suspect]
     Active Substance: GRANISETRON
     Indication: BREAST CANCER METASTATIC
     Dosage: 1 MILLIGRAM
     Route: 042
     Dates: start: 20110825
  24. PACLITAXEL. [Suspect]
     Active Substance: PACLITAXEL
     Indication: BREAST CANCER METASTATIC
     Dosage: 80 MILLIGRAM/SQ. METER
     Route: 042
     Dates: start: 20110825, end: 20110922
  25. CAPECITABINE. [Suspect]
     Active Substance: CAPECITABINE
     Dosage: 1300 MILLIGRAM/SQ. METER
     Route: 065
     Dates: start: 20111206
  26. XELODA [Suspect]
     Active Substance: CAPECITABINE
     Indication: BREAST CANCER
     Dosage: 3000 MG, UNK
     Route: 065
     Dates: start: 20111019, end: 20111206
  27. XELODA [Suspect]
     Active Substance: CAPECITABINE
     Dosage: 3000 MILLIGRAM/SQ. METER
     Route: 065
     Dates: start: 20111019, end: 20111206
  28. ZOMETA [Concomitant]
     Active Substance: ZOLEDRONIC ACID
     Indication: BREAST CANCER
     Dosage: 3.3 MILLIGRAM
     Route: 065
     Dates: start: 20110825
  29. ARIXTRA [Concomitant]
     Active Substance: FONDAPARINUX SODIUM
     Indication: THROMBOSIS PROPHYLAXIS
     Dosage: UNK
     Route: 065
     Dates: start: 20111219

REACTIONS (15)
  - Diarrhoea [Recovered/Resolved]
  - Vomiting [Recovered/Resolved]
  - Periodontitis [Not Recovered/Not Resolved]
  - Venous thrombosis limb [Recovering/Resolving]
  - Weight decreased [Recovered/Resolved]
  - Hypertension [Recovering/Resolving]
  - Thrombosis [Not Recovered/Not Resolved]
  - Dyspnoea [Recovered/Resolved]
  - Nausea [Recovered/Resolved]
  - General physical health deterioration [Recovered/Resolved]
  - Pulpitis dental [Recovered/Resolved]
  - Tooth erosion [Recovered/Resolved]
  - Mucosal inflammation [Recovered/Resolved]
  - Sensory disturbance [Recovered/Resolved]
  - Dysphagia [Recovered/Resolved]

NARRATIVE: CASE EVENT DATE: 20110827
